FAERS Safety Report 7273164-2 (Version None)
Quarter: 2011Q1

REPORT INFORMATION
  Report Type: 
  Country: None (occurrence: None)
  Receive Date: 20110203
  Receipt Date: 20101130
  Transmission Date: 20110831
  Serious: No
  Sender: FDA-Public Use
  Company Number: US-ABBOTT-10P-163-0689088-00

PATIENT
  Sex: Male
  Weight: 99.88 kg

DRUGS (3)
  1. SYNTHROID [Suspect]
  2. SYNTHROID [Suspect]
     Indication: HYPOTHYROIDISM
     Dates: start: 20091201
  3. SYNTHROID [Suspect]
     Indication: HYPOTHYROIDISM

REACTIONS (4)
  - ENERGY INCREASED [None]
  - EYE IRRITATION [None]
  - ANXIETY [None]
  - LETHARGY [None]
